FAERS Safety Report 8046974-1 (Version None)
Quarter: 2012Q1

REPORT INFORMATION
  Report Type: 
  Country: None (occurrence: None)
  Receive Date: 20120116
  Receipt Date: 20120106
  Transmission Date: 20120608
  Serious: Yes (Hospitalization)
  Sender: FDA-Public Use
  Company Number: US-BAYER-2011-087479

PATIENT
  Age: 38 Year
  Sex: Female

DRUGS (7)
  1. YAZ [Suspect]
     Dosage: UNK
     Dates: start: 20090101, end: 20100101
  2. SINGULAIR [Concomitant]
     Indication: ASTHMA
     Dosage: 10 MG, QD (DAILY IN THE EVENING)
     Route: 048
  3. FLONASE [Concomitant]
     Dosage: UNK UNK, QD (ONCE A DAY, 1 SPRAY)
     Route: 045
  4. PREDNISONE [Concomitant]
     Dosage: 20 MG, BID (TWICE A DAY AS NEEDED)
     Route: 048
  5. PROVENTIL [Concomitant]
     Indication: ASTHMA
     Dosage: UNK UNK, PRN
  6. MIDRIN [Concomitant]
     Dosage: UNK UNK, PRN (2 TABS AS NEEDED)
     Route: 048
  7. ADVAIR DISKUS 100/50 [Concomitant]
     Indication: ASTHMA
     Dosage: 1 PUFF(S), BID (TWICE A DAY)
     Route: 055

REACTIONS (3)
  - GALLBLADDER DISORDER [None]
  - PAIN [None]
  - CHOLECYSTITIS CHRONIC [None]
